FAERS Safety Report 8172532-4 (Version None)
Quarter: 2012Q1

REPORT INFORMATION
  Report Type: 
  Country: None (occurrence: None)
  Receive Date: 20120229
  Receipt Date: 20120224
  Transmission Date: 20120608
  Serious: Yes (Life-Threatening, Hospitalization)
  Sender: FDA-Public Use
  Company Number: RS-JNJFOC-20120213758

PATIENT
  Sex: Female
  Weight: 72 kg

DRUGS (4)
  1. DURAGESIC-100 [Suspect]
     Indication: PANCREATIC CARCINOMA
     Route: 062
     Dates: start: 20111201, end: 20111201
  2. DIAZEPAM [Concomitant]
     Route: 065
  3. KETOROLAC TROMETHAMINE [Concomitant]
     Route: 065
  4. ORAMORPH SR [Concomitant]
     Route: 065

REACTIONS (2)
  - CHOKING [None]
  - ERYTHEMA [None]
